FAERS Safety Report 14840403 (Version 1)
Quarter: 2018Q2

REPORT INFORMATION
  Report Type: Spontaneous
  Country: US (occurrence: US)
  Receive Date: 20180503
  Receipt Date: 20180503
  Transmission Date: 20180711
  Serious: No
  Sender: FDA-Public Use
  Company Number: US-TEVA-2018-US-886322

PATIENT
  Sex: Female

DRUGS (3)
  1. COPAXONE [Suspect]
     Active Substance: GLATIRAMER ACETATE
     Route: 058
     Dates: start: 2010
  2. COPAXONE [Suspect]
     Active Substance: GLATIRAMER ACETATE
     Indication: MULTIPLE SCLEROSIS
     Route: 058
     Dates: end: 201710
  3. INTERFERON [Concomitant]
     Active Substance: INTERFERON
     Indication: MULTIPLE SCLEROSIS

REACTIONS (6)
  - Injection related reaction [Unknown]
  - Pruritus [Unknown]
  - Drug ineffective [Unknown]
  - Condition aggravated [Unknown]
  - Burning sensation [Unknown]
  - Influenza like illness [Unknown]
